FAERS Safety Report 19657653 (Version 1)
Quarter: 2021Q3

REPORT INFORMATION
  Report Type: Spontaneous
  Country: CA (occurrence: CA)
  Receive Date: 20210804
  Receipt Date: 20210804
  Transmission Date: 20211014
  Serious: Yes (Other)
  Sender: FDA-Public Use
  Company Number: CA-PFIZER INC-2019043410

PATIENT
  Age: 71 Year
  Sex: Female

DRUGS (5)
  1. METHOTREXATE. [Concomitant]
     Active Substance: METHOTREXATE
     Dosage: 20 MG, WEEKLY
     Route: 048
     Dates: start: 20171123
  2. COVID?19 VACCINE [Concomitant]
     Indication: COVID-19 IMMUNISATION
     Dosage: DOSE 2, SINGLE
     Dates: start: 20210708, end: 20210708
  3. XELJANZ [Suspect]
     Active Substance: TOFACITINIB CITRATE
     Dosage: 5 MG, 2X/DAY
     Route: 048
     Dates: start: 2019
  4. XELJANZ [Suspect]
     Active Substance: TOFACITINIB CITRATE
     Indication: RHEUMATOID ARTHRITIS
     Dosage: 5 MG, 2X/DAY
     Route: 048
     Dates: start: 20190105, end: 2019
  5. SALAZOPYRIN [Concomitant]
     Active Substance: SULFASALAZINE
     Dosage: 1000 MG, 2X/DAY
     Dates: start: 20171115

REACTIONS (6)
  - Fall [Recovering/Resolving]
  - Ankle fracture [Recovering/Resolving]
  - Headache [Recovering/Resolving]
  - Pain [Unknown]
  - Therapeutic product effect incomplete [Recovering/Resolving]
  - Foot fracture [Recovering/Resolving]

NARRATIVE: CASE EVENT DATE: 2021
